FAERS Safety Report 18629610 (Version 2)
Quarter: 2020Q4

REPORT INFORMATION
  Report Type: Spontaneous
  Country: US (occurrence: US)
  Receive Date: 20201217
  Receipt Date: 20201228
  Transmission Date: 20210114
  Serious: No
  Sender: FDA-Public Use
  Company Number: US-PFIZER INC-2019326363

PATIENT
  Age: 50 Year
  Sex: Female

DRUGS (1)
  1. PREMPRO [Suspect]
     Active Substance: ESTROGENS, CONJUGATED\MEDROXYPROGESTERONE ACETATE
     Indication: GYNAECOLOGICAL EXAMINATION
     Dosage: 1 DF, 1X/DAY
     Route: 048

REACTIONS (4)
  - Product prescribing error [Unknown]
  - Anxiety [Unknown]
  - Off label use [Unknown]
  - Insomnia [Unknown]
